FAERS Safety Report 7875115-6 (Version None)
Quarter: 2011Q4

REPORT INFORMATION
  Report Type: 
  Country: None (occurrence: None)
  Receive Date: 20111031
  Receipt Date: 20111020
  Transmission Date: 20120403
  Serious: Yes (Hospitalization)
  Sender: FDA-Public Use
  Company Number: US-BIOGENIDEC-2011BI035601

PATIENT
  Age: 61 Year
  Sex: Male

DRUGS (3)
  1. AVONEX [Suspect]
     Route: 030
     Dates: start: 20030801, end: 20050401
  2. AVONEX [Suspect]
     Indication: MULTIPLE SCLEROSIS
     Route: 030
     Dates: start: 20091201
  3. AVONEX [Suspect]
     Route: 030
     Dates: start: 20010801, end: 20030801

REACTIONS (4)
  - SYNCOPE [None]
  - HEAT EXHAUSTION [None]
  - ROAD TRAFFIC ACCIDENT [None]
  - GOITRE [None]
